FAERS Safety Report 4587404-1 (Version None)
Quarter: 2005Q1

REPORT INFORMATION
  Report Type: 
  Country: None (occurrence: None)
  Receive Date: 20050218
  Receipt Date: 20050208
  Transmission Date: 20050727
  Serious: Yes (Hospitalization, Disabling)
  Sender: FDA-Public Use
  Company Number: US-JNJFOC-20040706842

PATIENT
  Sex: Female
  Weight: 92.08 kg

DRUGS (17)
  1. REMICADE [Suspect]
     Route: 042
  2. REMICADE [Suspect]
     Route: 042
  3. REMICADE [Suspect]
     Route: 042
  4. REMICADE [Suspect]
     Route: 042
  5. REMICADE [Suspect]
     Route: 042
  6. REMICADE [Suspect]
     Indication: RHEUMATOID ARTHRITIS
     Route: 042
  7. METHOTREXATE [Suspect]
  8. METHOTREXATE [Suspect]
     Indication: RHEUMATOID ARTHRITIS
  9. ESTRACE [Concomitant]
     Dosage: DAILY
  10. CLONIDINE [Concomitant]
  11. DIOVAN [Concomitant]
     Dosage: DAILY
  12. SKELAXIN [Concomitant]
  13. PREVACID [Concomitant]
     Dosage: DAILY
  14. DARVOCET-N 100 [Concomitant]
  15. DARVOCET-N 100 [Concomitant]
     Dosage: WHEN EVER NECESSARY
  16. MOBIC [Concomitant]
  17. PAXIL [Concomitant]

REACTIONS (24)
  - ACUTE PULMONARY HISTOPLASMOSIS [None]
  - APHTHOUS STOMATITIS [None]
  - ARTHRALGIA [None]
  - BACK PAIN [None]
  - BURSITIS [None]
  - CHONDROMALACIA [None]
  - CLUSTER HEADACHE [None]
  - CONDITION AGGRAVATED [None]
  - DEHYDRATION [None]
  - DRUG EFFECT DECREASED [None]
  - HEPATIC CYST [None]
  - HISTOPLASMOSIS [None]
  - HYPOTENSION [None]
  - IMMUNOSUPPRESSION [None]
  - INJURY [None]
  - INSOMNIA [None]
  - JOINT EFFUSION [None]
  - JOINT SWELLING [None]
  - MUSCULOSKELETAL STIFFNESS [None]
  - NAUSEA [None]
  - OSTEOARTHRITIS [None]
  - PAIN [None]
  - RENAL IMPAIRMENT [None]
  - RHEUMATOID ARTHRITIS [None]
